FAERS Safety Report 9275370 (Version 1)
Quarter: 2013Q2

REPORT INFORMATION
  Report Type: Spontaneous
  Country: IE (occurrence: IE)
  Receive Date: 20130507
  Receipt Date: 20130507
  Transmission Date: 20140414
  Serious: Yes (Other)
  Sender: FDA-Public Use
  Company Number: IE-JNJFOC-20130501771

PATIENT
  Sex: Female

DRUGS (8)
  1. SIMPONI [Suspect]
     Indication: RHEUMATOID ARTHRITIS
     Route: 058
     Dates: start: 20120515
  2. DELTACORTRIL [Concomitant]
     Route: 065
  3. CALCICHEW [Concomitant]
     Route: 065
  4. CALVEPEN [Concomitant]
     Route: 065
  5. ACTONEL [Concomitant]
     Route: 065
  6. SALAZOPYRINE [Concomitant]
     Route: 065
  7. PROTIUM [Concomitant]
     Route: 065
  8. COLOFAC [Concomitant]
     Route: 065

REACTIONS (2)
  - Lung infection [Unknown]
  - Cholecystitis infective [Unknown]
